FAERS Safety Report 18490683 (Version 2)
Quarter: 2021Q1

REPORT INFORMATION
  Report Type: Spontaneous
  Country: US (occurrence: US)
  Receive Date: 20201111
  Receipt Date: 20210106
  Transmission Date: 20210419
  Serious: Yes (Death, Hospitalization, Other)
  Sender: FDA-Public Use
  Company Number: US-009507513-2011USA004785

PATIENT
  Sex: Male

DRUGS (6)
  1. NOXAFIL [Suspect]
     Active Substance: POSACONAZOLE
     Route: 048
  2. ACYCLOVIR. [Concomitant]
     Active Substance: ACYCLOVIR
     Dosage: 1 TABLET TWICE A DAY
     Route: 048
     Dates: start: 201911
  3. VFEND [Suspect]
     Active Substance: VORICONAZOLE
     Dosage: 1 TABLET BY MOUTH TWICE A DAY
  4. CIPROFLOXACIN. [Concomitant]
     Active Substance: CIPROFLOXACIN
     Dosage: 500 MILLIGRAM, IN THE MORNING AND 500 MG AT NIGHT
     Dates: start: 200911
  5. ONDANSETRON [Concomitant]
     Active Substance: ONDANSETRON
     Indication: NAUSEA
     Dosage: 1 TABLET THIRTY MINUTES BEFORE EATING
     Route: 048
  6. METFORMIN [Concomitant]
     Active Substance: METFORMIN HYDROCHLORIDE
     Dosage: 2 TABLETS TWICE A DAY
     Route: 048

REACTIONS (3)
  - Localised infection [Unknown]
  - Myelodysplastic syndrome [Unknown]
  - Ill-defined disorder [Fatal]
